FAERS Safety Report 8083030-0 (Version None)
Quarter: 2012Q1

REPORT INFORMATION
  Report Type: 
  Country: None (occurrence: None)
  Receive Date: 20120127
  Receipt Date: 20110310
  Transmission Date: 20120608
  Serious: No
  Sender: FDA-Public Use
  Company Number: US-ABBOTT-11P-163-0710588-00

PATIENT
  Sex: Female

DRUGS (13)
  1. LIMBREL [Concomitant]
     Indication: OSTEOARTHRITIS
  2. FOLIC ACID [Concomitant]
     Indication: VITAMIN SUPPLEMENTATION
  3. MOBIC [Concomitant]
     Indication: PAIN
  4. METHOTREXATE [Concomitant]
     Indication: RHEUMATOID ARTHRITIS
  5. VIVELLE-DOT [Concomitant]
     Indication: HORMONE REPLACEMENT THERAPY
  6. METHOCARBAMOL [Concomitant]
     Indication: MUSCLE RELAXANT THERAPY
  7. NEXIUM [Concomitant]
     Indication: GASTROOESOPHAGEAL REFLUX DISEASE
  8. ALLOPURINOL [Concomitant]
     Indication: GOUT
  9. HUMIRA [Suspect]
     Indication: RHEUMATOID ARTHRITIS
     Dates: start: 20101201
  10. ALLEGRA [Concomitant]
     Indication: HYPERSENSITIVITY
  11. ENABLEX [Concomitant]
     Indication: HYPERTONIC BLADDER
  12. DICYCLOMINE [Concomitant]
     Indication: IRRITABLE BOWEL SYNDROME
  13. NORCO [Concomitant]
     Indication: PAIN

REACTIONS (1)
  - DIARRHOEA [None]
